FAERS Safety Report 10798567 (Version 5)
Quarter: 2015Q1

REPORT INFORMATION
  Report Type: Spontaneous
  Country: JP (occurrence: JP)
  Receive Date: 20150216
  Receipt Date: 20150313
  Transmission Date: 20150721
  Serious: Yes (Life-Threatening, Hospitalization, Other)
  Sender: FDA-Public Use
  Company Number: JP-GLAXOSMITHKLINE-JP2015JPN006675

PATIENT
  Age: 17 Year
  Sex: Female
  Weight: 65 kg

DRUGS (7)
  1. SOLANAX [Concomitant]
     Active Substance: ALPRAZOLAM
     Dosage: UNK, PRN
  2. LAMICTAL [Suspect]
     Active Substance: LAMOTRIGINE
     Indication: DYSTHYMIC DISORDER
     Dosage: 25 MG, BID
     Route: 048
     Dates: start: 20141226, end: 20150112
  3. TASMOLIN [Concomitant]
     Active Substance: BIPERIDEN
     Dosage: UNK
  4. ABILIFY [Concomitant]
     Active Substance: ARIPIPRAZOLE
     Dosage: UNK
  5. DEPAKENE [Concomitant]
     Active Substance: VALPROIC ACID
     Dosage: 200 MG, 1D
     Dates: start: 20140606, end: 20141226
  6. SULPIRIDE [Concomitant]
     Active Substance: SULPIRIDE
     Dosage: UNK
  7. SEPAZON [Concomitant]
     Active Substance: CLOXAZOLAM

REACTIONS (9)
  - Skin discolouration [Unknown]
  - Skin exfoliation [Unknown]
  - Oral pain [Recovering/Resolving]
  - Drug eruption [Recovering/Resolving]
  - Rash generalised [Recovered/Resolved]
  - Hepatic function abnormal [Recovering/Resolving]
  - Drug reaction with eosinophilia and systemic symptoms [Unknown]
  - Pyrexia [Recovering/Resolving]
  - Generalised erythema [Recovering/Resolving]

NARRATIVE: CASE EVENT DATE: 20150110
